FAERS Safety Report 21471891 (Version 1)
Quarter: 2022Q4

REPORT INFORMATION
  Report Type: Spontaneous
  Country: US (occurrence: None)
  Receive Date: 20221018
  Receipt Date: 20221018
  Transmission Date: 20230113
  Serious: No
  Sender: FDA-Public Use
  Company Number: 2022A346504

PATIENT
  Age: 47 Year
  Sex: Female
  Weight: 65.8 kg

DRUGS (1)
  1. EVUSHELD [Suspect]
     Active Substance: CILGAVIMAB\TIXAGEVIMAB
     Indication: Immunodeficiency
     Dosage: 150 MG OF TIXAGEVIMAB AND 150 MG OF CILGAVIMAB
     Route: 030
     Dates: start: 20221005

REACTIONS (3)
  - Rash [Not Recovered/Not Resolved]
  - Expired product administered [Unknown]
  - Underdose [Unknown]

NARRATIVE: CASE EVENT DATE: 20221005
